FAERS Safety Report 13718421 (Version 1)
Quarter: 2017Q3

REPORT INFORMATION
  Report Type: Report from Study
  Country: DE (occurrence: DE)
  Receive Date: 20170705
  Receipt Date: 20170705
  Transmission Date: 20171127
  Serious: Yes (Death, Hospitalization)
  Sender: FDA-Public Use
  Company Number: DE-JNJFOC-20170702224

PATIENT
  Age: 76 Year
  Sex: Female
  Weight: 90 kg

DRUGS (5)
  1. SOTALOL. [Concomitant]
     Active Substance: SOTALOL
     Indication: HYPERTENSION
     Dosage: OM
     Route: 065
  2. ENALAPRIL [Concomitant]
     Active Substance: ENALAPRIL
     Indication: HYPERTENSION
     Dosage: OM
     Route: 065
  3. ASA [Concomitant]
     Active Substance: ASPIRIN
     Indication: CEREBRAL ISCHAEMIA
     Route: 065
  4. HCT [Concomitant]
     Active Substance: HYDROCHLOROTHIAZIDE
     Indication: HYPERTENSION
     Dosage: OM
     Route: 065
  5. RIVAROXABAN [Suspect]
     Active Substance: RIVAROXABAN
     Indication: ATRIAL FIBRILLATION
     Route: 048

REACTIONS (5)
  - Cerebellar haemorrhage [Fatal]
  - Cerebral ventricular rupture [Fatal]
  - Loss of consciousness [Unknown]
  - Hemiparesis [Unknown]
  - Coma [Unknown]

NARRATIVE: CASE EVENT DATE: 20161223
